FAERS Safety Report 23980185 (Version 3)
Quarter: 2024Q3

REPORT INFORMATION
  Report Type: Report from Study
  Country: IT (occurrence: IT)
  Receive Date: 20240617
  Receipt Date: 20240923
  Transmission Date: 20241016
  Serious: Yes (Hospitalization)
  Sender: JOHNSON AND JOHNSON
  Company Number: IT-JNJFOC-20230414827

PATIENT
  Age: 46 Year
  Sex: Male
  Weight: 85 kg

DRUGS (12)
  1. TECLISTAMAB [Suspect]
     Active Substance: TECLISTAMAB
     Indication: Plasma cell myeloma refractory
     Route: 058
     Dates: start: 20220812, end: 20230401
  2. TECLISTAMAB [Suspect]
     Active Substance: TECLISTAMAB
     Route: 058
     Dates: start: 20230421
  3. TECLISTAMAB [Suspect]
     Active Substance: TECLISTAMAB
     Dosage: STEP-UP DOSE-1
     Route: 058
     Dates: start: 20220812, end: 20220812
  4. TECLISTAMAB [Suspect]
     Active Substance: TECLISTAMAB
     Dosage: STEP-UP DOSE-2
     Route: 058
     Dates: start: 20220815, end: 20220815
  5. TECLISTAMAB [Suspect]
     Active Substance: TECLISTAMAB
     Dosage: FIRST MAINTENANCE DOSE
     Route: 058
     Dates: start: 20220819, end: 20220819
  6. POTASSIUM CHLORIDE [Concomitant]
     Active Substance: POTASSIUM CHLORIDE
     Indication: Hypokalaemia
     Route: 048
     Dates: start: 20230405
  7. OMEPRAZOLE [Concomitant]
     Active Substance: OMEPRAZOLE
     Indication: Gastrointestinal disorder therapy
     Route: 048
  8. ACYCLOVIR [Concomitant]
     Active Substance: ACYCLOVIR
     Indication: Antiviral prophylaxis
     Route: 048
  9. BACTRIM [Concomitant]
     Active Substance: SULFAMETHOXAZOLE\TRIMETHOPRIM
     Indication: Antifungal prophylaxis
     Dosage: 800/160 MG, 2 DAYS/WEEK
     Route: 048
  10. AMLODIPINE [Concomitant]
     Active Substance: AMLODIPINE BESYLATE
     Indication: Hypertension
     Route: 048
  11. OLMESARTAN [Concomitant]
     Active Substance: OLMESARTAN
     Indication: Hypertension
     Route: 048
  12. IVIGLOB EX [Concomitant]
     Active Substance: HUMAN IMMUNOGLOBULIN G
     Indication: Infection prophylaxis
     Route: 065
     Dates: start: 20230120, end: 20230628

REACTIONS (2)
  - Gastroenteritis salmonella [Recovered/Resolved]
  - Off label use [Unknown]

NARRATIVE: CASE EVENT DATE: 20230405
